FAERS Safety Report 12961419 (Version 2)
Quarter: 2017Q1

REPORT INFORMATION
  Report Type: Spontaneous
  Country: PT (occurrence: PT)
  Receive Date: 20161121
  Receipt Date: 20170321
  Transmission Date: 20170428
  Serious: Yes (Life-Threatening, Hospitalization)
  Sender: FDA-Public Use
  Company Number: PT-VALIDUS PHARMACEUTICALS LLC-PT-2016VAL003028

PATIENT
  Age: 78 Year
  Sex: Female

DRUGS (7)
  1. PENTOXIFYLLINE. [Suspect]
     Active Substance: PENTOXIFYLLINE
     Indication: PERIPHERAL ISCHAEMIA
     Dosage: UNK
     Route: 065
  2. SILDENAFIL CITRATE. [Suspect]
     Active Substance: SILDENAFIL CITRATE
     Indication: PERIPHERAL ISCHAEMIA
     Dosage: UNK
     Route: 065
  3. SIMVASTATIN. [Suspect]
     Active Substance: SIMVASTATIN
     Indication: PERIPHERAL ISCHAEMIA
     Dosage: UNK
     Route: 065
  4. ASPIRIN                            /00002701/ [Suspect]
     Active Substance: ASPIRIN
     Indication: PERIPHERAL ISCHAEMIA
     Dosage: UNK
     Route: 065
  5. NIFEDIPINE. [Suspect]
     Active Substance: NIFEDIPINE
     Indication: PRODUCT USED FOR UNKNOWN INDICATION
     Dosage: UNK
     Route: 065
  6. BOSENTAN. [Suspect]
     Active Substance: BOSENTAN
     Indication: PRODUCT USED FOR UNKNOWN INDICATION
     Dosage: UNK
     Route: 065
  7. ENOXAPARIN SODIUM. [Suspect]
     Active Substance: ENOXAPARIN SODIUM
     Indication: PERIPHERAL ISCHAEMIA
     Dosage: UNK
     Route: 065

REACTIONS (5)
  - Drug ineffective [Unknown]
  - Inappropriate schedule of drug administration [Unknown]
  - Disease progression [Unknown]
  - Peripheral ischaemia [Unknown]
  - Necrosis [Recovered/Resolved]
